FAERS Safety Report 9288845 (Version 1)
Quarter: 2013Q2

REPORT INFORMATION
  Report Type: Spontaneous
  Country: US (occurrence: None)
  Receive Date: 20130509
  Receipt Date: 20130509
  Transmission Date: 20140414
  Serious: No
  Sender: FDA-Public Use
  Company Number: SPI201300309

PATIENT
  Sex: Female

DRUGS (1)
  1. AMITIZA [Suspect]
     Indication: IRRITABLE BOWEL SYNDROME

REACTIONS (2)
  - Dyspnoea [None]
  - Nausea [None]
